FAERS Safety Report 15867530 (Version 2)
Quarter: 2019Q1

REPORT INFORMATION
  Report Type: Report from Study
  Country: US (occurrence: US)
  Receive Date: 20190125
  Receipt Date: 20190204
  Transmission Date: 20190417
  Serious: Yes (Other)
  Sender: FDA-Public Use
  Company Number: US-AMGEN INC.-USASL2019010537

PATIENT
  Age: 65 Year
  Sex: Male

DRUGS (5)
  1. PRILOSEC [Concomitant]
     Active Substance: OMEPRAZOLE MAGNESIUM
     Dosage: UNK
  2. AIMOVIG [Suspect]
     Active Substance: ERENUMAB-AOOE
     Indication: MIGRAINE WITHOUT AURA
     Dosage: 70 MG, UNK
     Route: 065
     Dates: start: 201810
  3. LISINOPRIL. [Concomitant]
     Active Substance: LISINOPRIL
     Dosage: UNK
  4. ZYRTEC [Concomitant]
     Active Substance: CETIRIZINE HYDROCHLORIDE
     Dosage: UNK
  5. METOPROLOL TARTRATE. [Concomitant]
     Active Substance: METOPROLOL TARTRATE
     Dosage: UNK

REACTIONS (7)
  - Influenza like illness [Unknown]
  - Blood glucose abnormal [Unknown]
  - Temperature regulation disorder [Unknown]
  - Bone pain [Unknown]
  - Diarrhoea [Recovered/Resolved]
  - Malaise [Unknown]
  - Constipation [Unknown]

NARRATIVE: CASE EVENT DATE: 2018
